FAERS Safety Report 10371145 (Version 1)
Quarter: 2014Q3

REPORT INFORMATION
  Report Type: Spontaneous
  Country: US (occurrence: US)
  Receive Date: 20140808
  Receipt Date: 20140808
  Transmission Date: 20150326
  Serious: Yes (Hospitalization)
  Sender: FDA-Public Use
  Company Number: US-ASTELLAS-2014US009582

PATIENT
  Age: 59 Year
  Sex: Male

DRUGS (1)
  1. LEXISCAN [Suspect]
     Active Substance: REGADENOSON
     Indication: PRODUCT USED FOR UNKNOWN INDICATION
     Dosage: UNK UNK, TOTAL DOSE
     Route: 042
     Dates: start: 20140729, end: 20140729

REACTIONS (2)
  - Vision blurred [Not Recovered/Not Resolved]
  - Retinal artery occlusion [Unknown]

NARRATIVE: CASE EVENT DATE: 20140729
